FAERS Safety Report 21275166 (Version 3)
Quarter: 2023Q2

REPORT INFORMATION
  Report Type: Spontaneous
  Country: JP (occurrence: JP)
  Receive Date: 20220831
  Receipt Date: 20230620
  Transmission Date: 20230721
  Serious: Yes (Hospitalization, Other)
  Sender: FDA-Public Use
  Company Number: JP-PFIZER INC-PV202200048545

PATIENT
  Age: 8 Decade
  Sex: Male
  Weight: 60.8 kg

DRUGS (4)
  1. BEVACIZUMAB [Suspect]
     Active Substance: BEVACIZUMAB
     Indication: Neoplasm progression
     Dosage: 800 MG
  2. BEVACIZUMAB [Suspect]
     Active Substance: BEVACIZUMAB
     Indication: Hepatocellular carcinoma
  3. ATEZOLIZUMAB [Suspect]
     Active Substance: ATEZOLIZUMAB
     Indication: Hepatocellular carcinoma
     Dosage: 1200 MG
  4. ATEZOLIZUMAB [Suspect]
     Active Substance: ATEZOLIZUMAB
     Indication: Neoplasm progression

REACTIONS (2)
  - Immune thrombocytopenia [Recovered/Resolved]
  - Off label use [Unknown]
